FAERS Safety Report 16845551 (Version 1)
Quarter: 2019Q3

REPORT INFORMATION
  Report Type: Spontaneous
  Country: US (occurrence: US)
  Receive Date: 20190924
  Receipt Date: 20190924
  Transmission Date: 20191005
  Serious: No
  Sender: FDA-Public Use
  Company Number: US-AMGEN-USASP2019155168

PATIENT
  Age: 78 Year
  Sex: Male

DRUGS (1)
  1. IMLYGIC [Suspect]
     Active Substance: TALIMOGENE LAHERPAREPVEC
     Indication: MALIGNANT MELANOMA
     Dosage: 4 MILLILITER (10^6), Q2WK
     Route: 026
     Dates: start: 20190529

REACTIONS (2)
  - Pyrexia [Unknown]
  - Hot flush [Unknown]

NARRATIVE: CASE EVENT DATE: 20190529
